FAERS Safety Report 6998289-8 (Version None)
Quarter: 2010Q3

REPORT INFORMATION
  Report Type: 
  Country: None (occurrence: None)
  Receive Date: 20100920
  Receipt Date: 20090820
  Transmission Date: 20110219
  Serious: Yes (Hospitalization)
  Sender: FDA-Public Use
  Company Number: US-ASTRAZENECA-2009SE08958

PATIENT
  Age: 39 Year
  Sex: Male

DRUGS (4)
  1. SEROQUEL [Suspect]
     Dosage: INGESTED 1600 TO 2000 MG
     Route: 048
  2. KLONOPIN [Concomitant]
  3. ABILIFY [Concomitant]
  4. CELEXA [Concomitant]

REACTIONS (3)
  - LETHARGY [None]
  - MEDICATION ERROR [None]
  - SEDATION [None]
